FAERS Safety Report 7731054-2 (Version None)
Quarter: 2011Q3

REPORT INFORMATION
  Report Type: 
  Country: None (occurrence: None)
  Receive Date: 20110906
  Receipt Date: 20110906
  Transmission Date: 20111222
  Serious: Yes (Other)
  Sender: FDA-Public Use
  Company Number: None

PATIENT
  Age: 49 Year
  Sex: Female

DRUGS (1)
  1. SESTAMIBI [Suspect]
     Indication: CARDIAC STRESS TEST
     Route: 040
     Dates: start: 20110824, end: 20110824

REACTIONS (2)
  - RADIOISOTOPE SCAN ABNORMAL [None]
  - DEVICE COMPONENT ISSUE [None]
